FAERS Safety Report 7152642-0 (Version None)
Quarter: 2010Q4

REPORT INFORMATION
  Report Type: 
  Country: None (occurrence: None)
  Receive Date: 20101208
  Receipt Date: 20101208
  Transmission Date: 20110411
  Serious: Yes (Other)
  Sender: FDA-Public Use
  Company Number: None

PATIENT
  Age: 62 Year
  Sex: Female

DRUGS (1)
  1. MYOVIEW [Suspect]

REACTIONS (3)
  - COGNITIVE DISORDER [None]
  - ENCEPHALITIS ALLERGIC [None]
  - PARANOIA [None]
